FAERS Safety Report 5179111-1 (Version None)
Quarter: 2006Q4

REPORT INFORMATION
  Report Type: 
  Country: None (occurrence: None)
  Receive Date: 20061214
  Receipt Date: 20061214
  Transmission Date: 20070319
  Serious: Yes (Other)
  Sender: FDA-Public Use
  Company Number: None

PATIENT
  Age: 36 Year
  Sex: Female
  Weight: 47.6277 kg

DRUGS (2)
  1. LORAZEPAM [Suspect]
     Indication: ANXIETY
     Dosage: .25 MG  TWICE DAILY  PO
     Route: 048
     Dates: start: 20060622, end: 20061127
  2. LORAZEPAM [Suspect]
     Indication: SLEEP DISORDER
     Dosage: .25 MG  TWICE DAILY  PO
     Route: 048
     Dates: start: 20060622, end: 20061127

REACTIONS (20)
  - ANOREXIA [None]
  - ANXIETY [None]
  - DEPERSONALISATION [None]
  - DEPRESSION [None]
  - DEREALISATION [None]
  - DRUG WITHDRAWAL SYNDROME [None]
  - EMOTIONAL DISORDER [None]
  - HEADACHE [None]
  - HEARING IMPAIRED [None]
  - HYPERHIDROSIS [None]
  - IRRITABILITY [None]
  - MENTAL DISORDER [None]
  - MUSCLE SPASMS [None]
  - PAIN [None]
  - PALPITATIONS [None]
  - PANIC ATTACK [None]
  - PSYCHOTIC DISORDER [None]
  - TREMOR [None]
  - VISUAL DISTURBANCE [None]
  - WEIGHT DECREASED [None]
